FAERS Safety Report 15689182 (Version 1)
Quarter: 2018Q4

REPORT INFORMATION
  Report Type: Spontaneous
  Country: US (occurrence: US)
  Receive Date: 20181204
  Receipt Date: 20181204
  Transmission Date: 20190205
  Serious: Yes (Other)
  Sender: FDA-Public Use
  Company Number: None

PATIENT
  Age: 71 Year
  Sex: Male
  Weight: 62.01 kg

DRUGS (13)
  1. TRILEPTAL [Concomitant]
     Active Substance: OXCARBAZEPINE
  2. PROTONIX [Concomitant]
     Active Substance: PANTOPRAZOLE SODIUM
  3. CAPECITABINE. [Suspect]
     Active Substance: CAPECITABINE
     Indication: HISTIOCYTIC SARCOMA
     Dosage: ?          OTHER FREQUENCY:BID X2WK, 1 WK OFF;?
     Route: 048
     Dates: start: 20180730
  4. IRON [Concomitant]
     Active Substance: IRON
  5. GABAPENTIN. [Concomitant]
     Active Substance: GABAPENTIN
  6. ASPIRIN. [Concomitant]
     Active Substance: ASPIRIN
  7. COLACE [Concomitant]
     Active Substance: DOCUSATE SODIUM
  8. PROGRAF [Concomitant]
     Active Substance: TACROLIMUS\TACROLIMUS ANHYDROUS
  9. PRAVACHOL [Concomitant]
     Active Substance: PRAVASTATIN SODIUM
  10. DESIPRAMINE [Concomitant]
     Active Substance: DESIPRAMINE
  11. FLOMAX [Concomitant]
     Active Substance: TAMSULOSIN HYDROCHLORIDE
  12. HUMALOG [Concomitant]
     Active Substance: INSULIN LISPRO
  13. RESTORIL [Concomitant]
     Active Substance: TEMAZEPAM

REACTIONS (1)
  - Disease progression [None]

NARRATIVE: CASE EVENT DATE: 20181204
